FAERS Safety Report 21360217 (Version 1)
Quarter: 2022Q3

REPORT INFORMATION
  Report Type: Spontaneous
  Country: FR (occurrence: FR)
  Receive Date: 20220921
  Receipt Date: 20220921
  Transmission Date: 20221026
  Serious: Yes (Other)
  Sender: FDA-Public Use
  Company Number: None

PATIENT
  Age: 37 Year
  Sex: Female
  Weight: 52 kg

DRUGS (4)
  1. MIRENA [Suspect]
     Active Substance: LEVONORGESTREL
     Indication: Contraception
     Dosage: 20?G/DAY
     Route: 015
     Dates: start: 20220607
  2. SPIKEVAX [Suspect]
     Active Substance: ELASOMERAN
     Indication: COVID-19 immunisation
     Dosage: R1
     Route: 030
     Dates: start: 20220401, end: 20220401
  3. COMIRNATY [Concomitant]
     Active Substance: TOZINAMERAN
     Dosage: D2
     Route: 030
     Dates: start: 20210528, end: 20210528
  4. COMIRNATY [Concomitant]
     Active Substance: TOZINAMERAN
     Dosage: D1
     Route: 030
     Dates: start: 2021, end: 2021

REACTIONS (3)
  - Asthenia [Unknown]
  - Sensory disturbance [Unknown]
  - Dizziness [Unknown]

NARRATIVE: CASE EVENT DATE: 20220601
